FAERS Safety Report 7619719-4 (Version None)
Quarter: 2011Q3

REPORT INFORMATION
  Report Type: 
  Country: None (occurrence: None)
  Receive Date: 20110719
  Receipt Date: 20110708
  Transmission Date: 20111222
  Serious: Yes (Hospitalization, Other)
  Sender: FDA-Public Use
  Company Number: US-ELI_LILLY_AND_COMPANY-US201004000468

PATIENT
  Sex: Female
  Weight: 60.771 kg

DRUGS (5)
  1. FORTEO [Suspect]
     Indication: OSTEOPOROSIS
     Dosage: 20 UG, DAILY (1/D)
     Route: 065
  2. ERGOCALCIFEROL [Concomitant]
  3. ZYRTEC [Concomitant]
  4. TAMOXIFEN CITRATE [Concomitant]
  5. FORTEO [Suspect]
     Dosage: 20 UG, DAILY (1/D)
     Route: 065

REACTIONS (8)
  - MUSCLE SPASMS [None]
  - ACCIDENT [None]
  - DYSKINESIA [None]
  - SLEEP DISORDER [None]
  - LOSS OF CONSCIOUSNESS [None]
  - PAIN IN EXTREMITY [None]
  - EYE INJURY [None]
  - HEAD INJURY [None]
